FAERS Safety Report 7361790-1 (Version None)
Quarter: 2011Q1

REPORT INFORMATION
  Report Type: 
  Country: None (occurrence: None)
  Receive Date: 20110318
  Receipt Date: 20110308
  Transmission Date: 20110831
  Serious: Yes (Other)
  Sender: FDA-Public Use
  Company Number: US-CELGENEUS-163-21880-11031251

PATIENT
  Age: 43 Year
  Sex: Male

DRUGS (15)
  1. VELCADE [Concomitant]
     Route: 065
     Dates: start: 20091222
  2. CYTOXAN [Concomitant]
     Route: 048
     Dates: start: 20100622
  3. DEXAMETHASONE [Concomitant]
     Route: 065
     Dates: start: 20091222
  4. VORINOSTAT [Concomitant]
     Route: 065
     Dates: start: 20101108
  5. REVLIMID [Suspect]
     Route: 048
     Dates: start: 20100404, end: 20100816
  6. VELCADE [Concomitant]
     Indication: MULTIPLE MYELOMA
     Route: 065
     Dates: start: 20070801
  7. PREDNISONE [Concomitant]
     Route: 065
     Dates: start: 20100404
  8. CYTOXAN [Concomitant]
     Route: 048
     Dates: start: 20070101
  9. REVLIMID [Suspect]
     Indication: MULTIPLE MYELOMA
     Route: 048
     Dates: start: 20070101
  10. DEXAMETHASONE [Concomitant]
     Indication: MULTIPLE MYELOMA
     Route: 065
     Dates: start: 20070701
  11. VELCADE [Concomitant]
     Route: 065
     Dates: start: 20100404
  12. REVLIMID [Suspect]
     Route: 048
     Dates: start: 20091222
  13. VELCADE [Concomitant]
     Route: 065
     Dates: start: 20101108
  14. REVLIMID [Suspect]
     Route: 048
     Dates: start: 20101108
  15. DEXAMETHASONE [Concomitant]
     Route: 065
     Dates: start: 20101108

REACTIONS (3)
  - MASS [None]
  - HUMERUS FRACTURE [None]
  - PANCYTOPENIA [None]
